FAERS Safety Report 13309193 (Version 1)
Quarter: 2017Q1

REPORT INFORMATION
  Report Type: Spontaneous
  Country: US (occurrence: US)
  Receive Date: 20170309
  Receipt Date: 20170309
  Transmission Date: 20170428
  Serious: No
  Sender: FDA-Public Use
  Company Number: US-JNJFOC-20161223734

PATIENT
  Sex: Female

DRUGS (11)
  1. SUTENT [Concomitant]
     Active Substance: SUNITINIB MALATE
     Indication: METASTASES TO LUNG
     Dosage: 20 MG, 2 WEEKS ON 1 WEEK OFF TWICE
     Route: 065
     Dates: start: 20160811
  2. LIPITOR [Concomitant]
     Active Substance: ATORVASTATIN CALCIUM
     Indication: PRODUCT USED FOR UNKNOWN INDICATION
     Route: 065
     Dates: end: 20160919
  3. TYLENOL WITH CODEINE [Suspect]
     Active Substance: ACETAMINOPHEN\CODEINE PHOSPHATE
     Indication: PRODUCT USED FOR UNKNOWN INDICATION
     Dosage: TOOK 1 PILL
     Route: 065
     Dates: start: 20160723, end: 20160723
  4. SUTENT [Concomitant]
     Active Substance: SUNITINIB MALATE
     Indication: METASTATIC RENAL CELL CARCINOMA
     Dosage: 20 MG, 2 WEEKS ON 1 WEEK OFF TWICE
     Route: 065
     Dates: start: 20160811
  5. SUTENT [Concomitant]
     Active Substance: SUNITINIB MALATE
     Indication: METASTASES TO LIVER
     Dosage: 20 MG, 4 WEEKS ON, 2 WEEKS OFF
     Route: 065
     Dates: start: 20160630
  6. MEGACE [Concomitant]
     Active Substance: MEGESTROL ACETATE
     Indication: PRODUCT USED FOR UNKNOWN INDICATION
     Route: 065
  7. SUTENT [Concomitant]
     Active Substance: SUNITINIB MALATE
     Indication: METASTASES TO LUNG
     Dosage: 20 MG, 4 WEEKS ON, 2 WEEKS OFF
     Route: 065
     Dates: start: 20160630
  8. SUTENT [Concomitant]
     Active Substance: SUNITINIB MALATE
     Indication: METASTATIC RENAL CELL CARCINOMA
     Dosage: 20 MG, 4 WEEKS ON, 2 WEEKS OFF
     Route: 065
     Dates: start: 20160630
  9. DIOVAN [Concomitant]
     Active Substance: VALSARTAN
     Indication: PRODUCT USED FOR UNKNOWN INDICATION
     Route: 065
     Dates: end: 20160919
  10. SUTENT [Concomitant]
     Active Substance: SUNITINIB MALATE
     Indication: METASTASES TO LIVER
     Dosage: 20 MG, 2 WEEKS ON 1 WEEK OFF TWICE
     Route: 065
     Dates: start: 20160811
  11. FERREX [Concomitant]
     Indication: PRODUCT USED FOR UNKNOWN INDICATION
     Route: 065
     Dates: end: 201607

REACTIONS (1)
  - Adverse event [Unknown]
